FAERS Safety Report 25292815 (Version 1)
Quarter: 2025Q2

REPORT INFORMATION
  Report Type: Spontaneous
  Country: US (occurrence: US)
  Receive Date: 20250510
  Receipt Date: 20250510
  Transmission Date: 20250716
  Serious: No
  Sender: SANOFI AVENTIS
  Company Number: US-SA-2025SA127244

PATIENT
  Sex: Female
  Weight: 47.73 kg

DRUGS (12)
  1. DUPIXENT [Suspect]
     Active Substance: DUPILUMAB
     Indication: Dermatitis
     Dosage: 300 MG, QOW
     Route: 058
  2. INGREZZA [Concomitant]
     Active Substance: VALBENAZINE DITOSYLATE
  3. TRIAMCINOLONE ACETONIDE [Concomitant]
     Active Substance: TRIAMCINOLONE ACETONIDE
  4. LIDOCAINE [Concomitant]
     Active Substance: LIDOCAINE
  5. TAMSULOSIN [Concomitant]
     Active Substance: TAMSULOSIN
  6. LORATADINE [Concomitant]
     Active Substance: LORATADINE
  7. CEPHALEXIN [Concomitant]
     Active Substance: CEPHALEXIN
  8. ATROPINE SULFATE [Concomitant]
     Active Substance: ATROPINE SULFATE
  9. ESCITALOPRAM OXALATE [Concomitant]
     Active Substance: ESCITALOPRAM OXALATE
  10. CLOBETASOL PROPIONATE [Concomitant]
     Active Substance: CLOBETASOL PROPIONATE
  11. TRAZODONE [Concomitant]
     Active Substance: TRAZODONE HYDROCHLORIDE
  12. FLUTICASONE PROPIONATE [Concomitant]
     Active Substance: FLUTICASONE PROPIONATE

REACTIONS (1)
  - Product use in unapproved indication [Unknown]
